FAERS Safety Report 5447741-5 (Version None)
Quarter: 2007Q3

REPORT INFORMATION
  Report Type: 
  Country: None (occurrence: None)
  Receive Date: 20070910
  Receipt Date: 20070827
  Transmission Date: 20080115
  Serious: Yes (Other)
  Sender: FDA-Public Use
  Company Number: DE-ELI_LILLY_AND_COMPANY-DE200708006318

PATIENT
  Sex: Female

DRUGS (6)
  1. FORTEO [Suspect]
     Indication: OSTEOPOROSIS
     Dosage: UNK, DAILY (1/D)
     Route: 058
     Dates: start: 20070820, end: 20070826
  2. ATACAND [Concomitant]
     Dosage: UNK, UNKNOWN
     Route: 065
  3. METOHEXAL [Concomitant]
     Dosage: UNK, UNKNOWN
     Route: 065
  4. TROMCARDIN [Concomitant]
     Dosage: UNK, UNKNOWN
     Route: 065
  5. CALCIUM [Concomitant]
     Dosage: UNK, UNKNOWN
     Route: 065
  6. TRIDIN [Concomitant]
     Dosage: UNK, UNKNOWN
     Route: 065

REACTIONS (3)
  - BLOOD PRESSURE DECREASED [None]
  - CHEST DISCOMFORT [None]
  - HEART RATE INCREASED [None]
